FAERS Safety Report 6279651-8 (Version None)
Quarter: 2009Q3

REPORT INFORMATION
  Report Type: 
  Country: None (occurrence: None)
  Receive Date: 20090723
  Receipt Date: 20090720
  Transmission Date: 20100115
  Serious: Yes (Life-Threatening, Hospitalization)
  Sender: FDA-Public Use
  Company Number: US-KINGPHARMUSA00001-K200900853

PATIENT
  Age: 79 Year
  Sex: Female

DRUGS (10)
  1. ALTACE [Suspect]
     Indication: HYPERTENSION
     Dosage: 10 MG, QD
     Route: 048
     Dates: start: 20000101, end: 20081211
  2. ALTACE [Suspect]
     Dosage: 5 MG, QD
     Route: 048
     Dates: start: 20081212
  3. ALDACTONE [Suspect]
     Indication: RENAL FAILURE CHRONIC
     Dosage: 50 MG, QD
     Route: 048
     Dates: start: 20081001, end: 20081208
  4. FALITHROM [Concomitant]
     Indication: ATRIAL FIBRILLATION
     Dosage: 3 MG, UNK
     Route: 048
     Dates: start: 20080401
  5. JURNISTA [Concomitant]
     Indication: PAIN
     Dosage: 8 MG, QD
     Route: 048
     Dates: start: 20081124
  6. LACTULOSE [Concomitant]
     Indication: CONSTIPATION
     Dosage: 20 MG, QD
     Route: 048
     Dates: start: 20081001
  7. METOPROLOL SUCCINATE [Concomitant]
     Indication: HYPERTENSION
     Dosage: 190 MG, QD
     Route: 048
     Dates: start: 20000101, end: 20081208
  8. NORVASC [Concomitant]
     Indication: HYPERTENSION
     Dosage: 5 MG, QD
     Route: 048
     Dates: start: 20000101
  9. SIMVASTATIN [Concomitant]
     Indication: HYPERLIPIDAEMIA
     Dosage: 20 MG, QD
     Route: 048
     Dates: start: 20000101
  10. ZYLORIC [Concomitant]
     Indication: HYPERURICAEMIA
     Dosage: 150 MG, QD
     Route: 048
     Dates: start: 20000101

REACTIONS (11)
  - BLOOD GLUCOSE INCREASED [None]
  - CARDIOMEGALY [None]
  - CEREBRAL INFARCTION [None]
  - COAGULOPATHY [None]
  - CONFUSIONAL STATE [None]
  - DISTURBANCE IN ATTENTION [None]
  - DYSPNOEA EXERTIONAL [None]
  - GENERAL PHYSICAL HEALTH DETERIORATION [None]
  - HALLUCINATION [None]
  - HYPERKALAEMIA [None]
  - OEDEMA PERIPHERAL [None]
